FAERS Safety Report 18047896 (Version 2)
Quarter: 2020Q4

REPORT INFORMATION
  Report Type: Spontaneous
  Country: DE (occurrence: DE)
  Receive Date: 20200721
  Receipt Date: 20201005
  Transmission Date: 20210113
  Serious: Yes (Other)
  Sender: FDA-Public Use
  Company Number: DE-GLENMARK PHARMACEUTICALS-2020GMK048656

PATIENT
  Age: 80 Year
  Sex: Female

DRUGS (24)
  1. CICLOSPORIN [Suspect]
     Active Substance: CYCLOSPORINE
     Dosage: 100 MILLIGRAM, QD (CYCLOSPORINE A)
     Route: 065
  2. PREDNICARBATE. [Suspect]
     Active Substance: PREDNICARBATE
     Indication: NEURODERMATITIS
     Dosage: UNK
     Route: 061
  3. BENDAMUSTINE [Suspect]
     Active Substance: BENDAMUSTINE
     Indication: CHRONIC LYMPHOCYTIC LEUKAEMIA
     Dosage: UNK
     Route: 065
  4. RITUXIMAB. [Suspect]
     Active Substance: RITUXIMAB
     Indication: CHRONIC LYMPHOCYTIC LEUKAEMIA
     Dosage: UNK
     Route: 065
  5. CETIRIZINE [Concomitant]
     Active Substance: CETIRIZINE HYDROCHLORIDE
     Indication: NEURODERMATITIS
     Dosage: 60 MILLIGRAM, QD
     Route: 065
  6. DESLORATADINE. [Concomitant]
     Active Substance: DESLORATADINE
     Indication: NEURODERMATITIS
     Dosage: 20 MILLIGRAM, QD
     Route: 065
  7. PAROXETINE. [Concomitant]
     Active Substance: PAROXETINE
     Indication: ANTIDEPRESSANT THERAPY
     Dosage: 20 MILLIGRAM, QD
     Route: 065
  8. HYDROXYZINE [Concomitant]
     Active Substance: HYDROXYZINE HYDROCHLORIDE
     Indication: NEURODERMATITIS
     Dosage: 25 MILLIGRAM, QD
     Route: 065
  9. TACROLIMUS. [Suspect]
     Active Substance: TACROLIMUS
     Indication: NEURODERMATITIS
     Dosage: UNK
     Route: 061
  10. CICLOSPORIN [Suspect]
     Active Substance: CYCLOSPORINE
     Indication: NEURODERMATITIS
     Dosage: 300 MILLIGRAM, QD
     Route: 065
  11. BETAMETHASONE. [Suspect]
     Active Substance: BETAMETHASONE
     Indication: DERMATITIS ATOPIC
     Dosage: UNK
     Route: 061
  12. GABAPENTIN. [Concomitant]
     Active Substance: GABAPENTIN
     Dosage: 900 MILLIGRAM, OD
     Route: 065
  13. NALOXONE [Concomitant]
     Active Substance: NALOXONE
     Indication: NEURODERMATITIS
     Dosage: 1.2 MILLIGRAM, 7 CYCLICAL
     Route: 042
  14. PIMECROLIMUS. [Suspect]
     Active Substance: PIMECROLIMUS
     Indication: NEURODERMATITIS
     Dosage: UNK
     Route: 061
  15. CLOBETASOL PROPIONATE. [Suspect]
     Active Substance: CLOBETASOL PROPIONATE
     Indication: DERMATITIS ATOPIC
     Dosage: UNK
     Route: 061
  16. PREDNISOLONE. [Suspect]
     Active Substance: PREDNISOLONE
     Indication: NEURODERMATITIS
     Dosage: 40 MILLIGRAM, QD
     Route: 048
  17. MIRTAZAPINE. [Concomitant]
     Active Substance: MIRTAZAPINE
     Indication: ANTIDEPRESSANT THERAPY
     Dosage: 15 MILLIGRAM, QD
     Route: 065
  18. MOMETASONE FUROATE. [Suspect]
     Active Substance: MOMETASONE FUROATE
     Indication: NEURODERMATITIS
     Dosage: UNK
     Route: 061
  19. METHOTREXATE. [Suspect]
     Active Substance: METHOTREXATE
     Indication: NEURODERMATITIS
     Dosage: 10 MILLIGRAM, QW
     Route: 065
  20. BETAMETHASONE VALERATE. [Suspect]
     Active Substance: BETAMETHASONE VALERATE
     Indication: NEURODERMATITIS
     Dosage: UNK
     Route: 061
  21. NALTREXONE [Concomitant]
     Active Substance: NALTREXONE
     Indication: NEURODERMATITIS
     Dosage: 25 MILLIGRAM, QD
     Route: 065
  22. POLIDOCANOL. [Concomitant]
     Active Substance: POLIDOCANOL
     Indication: NEURODERMATITIS
     Dosage: UNK
     Route: 065
  23. GABAPENTIN. [Concomitant]
     Active Substance: GABAPENTIN
     Indication: NEURODERMATITIS
     Dosage: UP TO 900 MG/D
     Route: 065
  24. POLIDOCANOL. [Concomitant]
     Active Substance: POLIDOCANOL
     Indication: NEURODERMATITIS
     Dosage: UNK
     Route: 065

REACTIONS (1)
  - Intraductal papillary mucinous neoplasm [Unknown]
